FAERS Safety Report 18326512 (Version 3)
Quarter: 2022Q3

REPORT INFORMATION
  Report Type: Spontaneous
  Country: US (occurrence: US)
  Receive Date: 20200930
  Receipt Date: 20220910
  Transmission Date: 20221026
  Serious: Yes (Death, Other)
  Sender: FDA-Public Use
  Company Number: US-SAARTEMIS-SAC202009280308

PATIENT
  Age: 57 Year
  Sex: Male

DRUGS (1)
  1. ZANTAC [Suspect]
     Active Substance: RANITIDINE HYDROCHLORIDE
     Indication: Dyspepsia
     Dosage: UNK; OTHER
     Route: 065
     Dates: start: 199001, end: 201301

REACTIONS (2)
  - Hepatic cancer stage IV [Fatal]
  - Disease progression [Fatal]

NARRATIVE: CASE EVENT DATE: 20191201
